FAERS Safety Report 9491894 (Version 2)
Quarter: 2013Q3

REPORT INFORMATION
  Report Type: Spontaneous
  Country: US (occurrence: US)
  Receive Date: 20130830
  Receipt Date: 20130830
  Transmission Date: 20140515
  Serious: Yes (Disabling)
  Sender: FDA-Public Use
  Company Number: US-GENZYME-FABR-1003383

PATIENT
  Age: 31 Year
  Sex: Male
  Weight: 63.49 kg

DRUGS (12)
  1. FABRAZYME [Suspect]
     Indication: FABRY^S DISEASE
     Dosage: 70 MG (0.9 MG/KG), Q2W
     Route: 042
     Dates: start: 20120913
  2. DILAUDID [Concomitant]
     Indication: PRODUCT USED FOR UNKNOWN INDICATION
     Dosage: UNK
     Route: 065
  3. PERCOCET [Concomitant]
     Indication: PRODUCT USED FOR UNKNOWN INDICATION
     Dosage: UNK
     Route: 065
  4. CYCLOBENZAPRINE [Concomitant]
     Indication: PRODUCT USED FOR UNKNOWN INDICATION
     Dosage: UNK
     Route: 065
  5. WELLBUTRIN [Concomitant]
     Indication: PRODUCT USED FOR UNKNOWN INDICATION
     Dosage: UNK
     Route: 065
  6. LYRICA [Concomitant]
     Indication: NEUROPATHY PERIPHERAL
     Dosage: 150 MG, BID
     Route: 065
     Dates: start: 20130726
  7. TRAZODONE [Concomitant]
     Indication: INSOMNIA
     Dosage: 50 MG, UNK
     Route: 065
     Dates: start: 20130823
  8. CELEXA [Concomitant]
     Indication: DEPRESSION
     Dosage: 30 MG, QD
     Route: 065
     Dates: start: 20130726
  9. CELEXA [Concomitant]
     Indication: PAIN
  10. HYDROMORPHONE [Concomitant]
     Indication: PAIN
     Dosage: 4 MG, UNK
     Route: 065
     Dates: start: 2012
  11. OXYCODONE [Concomitant]
     Indication: PAIN
     Dosage: 15 MG, UNK
     Route: 065
     Dates: start: 2011
  12. DICLOFENAC [Concomitant]
     Indication: ARTHRALGIA
     Dosage: 75 MG, BID
     Route: 065
     Dates: start: 2012

REACTIONS (1)
  - Tooth infection [Not Recovered/Not Resolved]
